FAERS Safety Report 6263277-6 (Version None)
Quarter: 2009Q3

REPORT INFORMATION
  Report Type: 
  Country: None (occurrence: None)
  Receive Date: 20090708
  Receipt Date: 20090708
  Transmission Date: 20100115
  Serious: No
  Sender: FDA-Public Use
  Company Number: None

PATIENT
  Age: 66 Year
  Sex: Male
  Weight: 102.9665 kg

DRUGS (1)
  1. VANCOMYCIN [Suspect]
     Indication: OSTEOMYELITIS
     Dosage: 2 GRAM IV
     Route: 042
     Dates: start: 20090612, end: 20090612

REACTIONS (4)
  - DISCOMFORT [None]
  - ERYTHEMA [None]
  - PRURITUS [None]
  - SCRATCH [None]
